FAERS Safety Report 16362677 (Version 2)
Quarter: 2019Q2

REPORT INFORMATION
  Report Type: Report from Study
  Country: US (occurrence: US)
  Receive Date: 20190528
  Receipt Date: 20190604
  Transmission Date: 20190711
  Serious: Yes (Death)
  Sender: FDA-Public Use
  Company Number: US-PUMA BIOTECHNOLOGY, LTD.-2019US003505

PATIENT

DRUGS (2)
  1. NERLYNX [Suspect]
     Active Substance: NERATINIB
     Indication: BREAST CANCER STAGE IV
     Dosage: 6 TABLETS, DAILY
     Route: 048
     Dates: start: 201904, end: 20190426
  2. NERLYNX [Suspect]
     Active Substance: NERATINIB
     Indication: HER-2 POSITIVE BREAST CANCER

REACTIONS (6)
  - Diarrhoea [Recovered/Resolved]
  - Death [Fatal]
  - Off label use [Unknown]
  - Hospice care [Unknown]
  - Metastases to central nervous system [Unknown]
  - Breast cancer stage IV [Unknown]

NARRATIVE: CASE EVENT DATE: 2019
